FAERS Safety Report 11243762 (Version 1)
Quarter: 2015Q3

REPORT INFORMATION
  Report Type: Spontaneous
  Country: US (occurrence: None)
  Receive Date: 20150702
  Receipt Date: 20150702
  Transmission Date: 20151125
  Serious: No
  Sender: FDA-Public Use
  Company Number: None

PATIENT
  Age: 11 Year
  Sex: Female
  Weight: 34.4 kg

DRUGS (3)
  1. VINCRISTINE SULFATE. [Suspect]
     Active Substance: VINCRISTINE SULFATE
     Dates: start: 20150623
  2. MERCAPTOPURINE. [Suspect]
     Active Substance: MERCAPTOPURINE
     Dates: start: 20150623
  3. METHOTREXATE [Suspect]
     Active Substance: METHOTREXATE
     Dates: start: 20150623

REACTIONS (4)
  - Hypokalaemia [None]
  - Mucosal inflammation [None]
  - Fluid overload [None]
  - Drug clearance decreased [None]

NARRATIVE: CASE EVENT DATE: 20150625
